FAERS Safety Report 17951582 (Version 1)
Quarter: 2020Q2

REPORT INFORMATION
  Report Type: Spontaneous
  Country: AU (occurrence: AU)
  Receive Date: 20200626
  Receipt Date: 20200626
  Transmission Date: 20200714
  Serious: Yes (Other)
  Sender: FDA-Public Use
  Company Number: AU-CELGENEUS-AUS-20200606920

PATIENT
  Sex: Female

DRUGS (2)
  1. IXA [Concomitant]
     Indication: AMYLOIDOSIS
     Route: 065
  2. LENALIDOMIDE [Suspect]
     Active Substance: LENALIDOMIDE
     Indication: AMYLOIDOSIS
     Route: 048

REACTIONS (3)
  - Proteinuria [Unknown]
  - Drug intolerance [Unknown]
  - End stage renal disease [Unknown]
